FAERS Safety Report 4840879-2 (Version None)
Quarter: 2005Q4

REPORT INFORMATION
  Report Type: 
  Country: None (occurrence: None)
  Receive Date: 20051130
  Receipt Date: 20040917
  Transmission Date: 20060501
  Serious: Yes (Death)
  Sender: FDA-Public Use
  Company Number: AU-SOLVAY-00305003986

PATIENT
  Sex: Male

DRUGS (5)
  1. CLOZAPINE [Concomitant]
     Indication: PSYCHOTIC DISORDER
     Dosage: DAILY DOSE:  UNKNOWN
     Route: 065
  2. FLUVOXAMINE MALEATE [Suspect]
     Indication: ILL-DEFINED DISORDER
     Dosage: DAILY DOSE:  UNKNOWN
     Route: 048
  3. OLANZAPINE [Interacting]
     Indication: SCHIZOPHRENIA
     Dosage: DAILY DOSE: 20 MILLIGRAM(S)
     Route: 048
  4. ZUCLOPENTHIXOL [Concomitant]
     Indication: ILL-DEFINED DISORDER
     Dosage: DAILY DOSE:  UNKNOWN
     Route: 065
  5. VALPROATE SODIUM [Interacting]
     Indication: ILL-DEFINED DISORDER
     Dosage: DAILY DOSE:  UNKNOWN
     Route: 048

REACTIONS (4)
  - DEATH [None]
  - DRUG DEPENDENCE [None]
  - DRUG INTERACTION [None]
  - DRUG TOXICITY [None]
